FAERS Safety Report 4921586-4 (Version None)
Quarter: 2006Q1

REPORT INFORMATION
  Report Type: 
  Country: None (occurrence: None)
  Receive Date: 20060221
  Receipt Date: 20060210
  Transmission Date: 20060701
  Serious: Yes (Other)
  Sender: FDA-Public Use
  Company Number: 2006021434

PATIENT
  Age: 67 Year
  Sex: Male
  Weight: 99.7913 kg

DRUGS (4)
  1. XALATAN [Suspect]
     Indication: GLAUCOMA
     Dosage: TWICE DAILY IN BOTH EYES, OPHTHALMIC
     Route: 047
     Dates: start: 20051201
  2. TIMOPTIC [Concomitant]
  3. IMIPRAMINE [Concomitant]
  4. ATENOLOL [Concomitant]

REACTIONS (2)
  - CORNEAL GRAFT REJECTION [None]
  - OCULAR HYPERAEMIA [None]
